FAERS Safety Report 16123617 (Version 1)
Quarter: 2019Q1

REPORT INFORMATION
  Report Type: Spontaneous
  Country: IT (occurrence: IT)
  Receive Date: 20190327
  Receipt Date: 20190327
  Transmission Date: 20190418
  Serious: Yes (Hospitalization)
  Sender: FDA-Public Use
  Company Number: IT-MYLANLABS-2019M1026614

PATIENT
  Age: 80 Year
  Sex: Female

DRUGS (1)
  1. CITALOPRAM [Suspect]
     Active Substance: CITALOPRAM HYDROBROMIDE
     Indication: PLASMA CELL MYELOMA
     Dosage: 1 DOSAGE FORM, TOTAL
     Route: 048
     Dates: start: 20180906, end: 20180906

REACTIONS (2)
  - Depressed level of consciousness [Unknown]
  - Medication error [Unknown]

NARRATIVE: CASE EVENT DATE: 20180906
